FAERS Safety Report 11525944 (Version 1)
Quarter: 2015Q3

REPORT INFORMATION
  Report Type: Spontaneous
  Country: US (occurrence: US)
  Receive Date: 20150918
  Receipt Date: 20150918
  Transmission Date: 20151125
  Serious: Yes (Death, Other)
  Sender: FDA-Public Use
  Company Number: US-TAKEDA-TPA2012A02644

PATIENT

DRUGS (1)
  1. ACTOPLUS MET [Suspect]
     Active Substance: METFORMIN HYDROCHLORIDE\PIOGLITAZONE HYDROCHLORIDE
     Indication: TYPE 2 DIABETES MELLITUS
     Dosage: 15/500 1 TABLET, BID
     Route: 048
     Dates: start: 200505, end: 201202

REACTIONS (2)
  - Bladder transitional cell carcinoma metastatic [Fatal]
  - Hyponatraemia [Unknown]

NARRATIVE: CASE EVENT DATE: 201107
